FAERS Safety Report 19315536 (Version 1)
Quarter: 2021Q2

REPORT INFORMATION
  Report Type: Spontaneous
  Country: US (occurrence: US)
  Receive Date: 20210527
  Receipt Date: 20210527
  Transmission Date: 20210717
  Serious: Yes (Other)
  Sender: FDA-Public Use
  Company Number: US-SHILPA MEDICARE LIMITED-SML-US-2021-00659

PATIENT
  Age: 56 Year
  Sex: Female

DRUGS (2)
  1. CISPLATIN. [Suspect]
     Active Substance: CISPLATIN
     Indication: BREAST CANCER METASTATIC
     Route: 065
     Dates: start: 201710
  2. GEMCITABINE, UNKNOWN [Suspect]
     Active Substance: GEMCITABINE
     Indication: BREAST CANCER METASTATIC
     Route: 065
     Dates: start: 201710

REACTIONS (3)
  - Thrombocytopenia [Unknown]
  - Hypoacusis [Unknown]
  - Disease progression [Unknown]
